FAERS Safety Report 13048813 (Version 1)
Quarter: 2016Q4

REPORT INFORMATION
  Report Type: Report from Study
  Country: US (occurrence: US)
  Receive Date: 20161221
  Receipt Date: 20161221
  Transmission Date: 20170207
  Serious: No
  Sender: FDA-Public Use
  Company Number: US-009507513-1612USA009802

PATIENT
  Sex: Female

DRUGS (6)
  1. DEXAMETHASONE. [Suspect]
     Active Substance: DEXAMETHASONE
     Indication: PLASMA CELL MYELOMA
     Dosage: UNK, FIRST LINE TREATMENT ALONG WITH LENALIDOMIDE AND BORTEZOMIB
     Route: 048
     Dates: start: 201509
  2. BORTEZOMIB [Suspect]
     Active Substance: BORTEZOMIB
     Dosage: UNK, SECOND LINE TREATMENT ALONG WITH DEXAMETHASONE
  3. BORTEZOMIB [Suspect]
     Active Substance: BORTEZOMIB
     Indication: PLASMA CELL MYELOMA
     Dosage: UNK, FIRST LINE TREATMENT ALONG WITH DEXAMETHASONE AND LENALIDOMIDE
     Dates: start: 201509
  4. DEXAMETHASONE. [Suspect]
     Active Substance: DEXAMETHASONE
     Dosage: UNK, THIRD LINE TREATMENT ALONG WITH IXAZOMIB
     Route: 048
  5. LENALIDOMIDE [Suspect]
     Active Substance: LENALIDOMIDE
     Indication: PLASMA CELL MYELOMA
     Dosage: UNK
     Dates: start: 201509
  6. DEXAMETHASONE. [Suspect]
     Active Substance: DEXAMETHASONE
     Dosage: UNK, SECOND LINE TREATMENT ALONG WITH BORTEZOMIB
     Route: 048

REACTIONS (1)
  - Adverse event [Unknown]
